FAERS Safety Report 9844402 (Version 4)
Quarter: 2014Q1

REPORT INFORMATION
  Report Type: Report from Study
  Country: ZA (occurrence: ZA)
  Receive Date: 20140127
  Receipt Date: 20140328
  Transmission Date: 20141002
  Serious: Yes (Death, Other)
  Sender: FDA-Public Use
  Company Number: PHHY2014ZA008206

PATIENT
  Age: 77 Year
  Sex: Male

DRUGS (1)
  1. ACLASTA [Suspect]
     Indication: OSTEOPOROSIS
     Dosage: 5 MG/100ML
     Route: 042
     Dates: start: 2012

REACTIONS (4)
  - Cardiac failure [Fatal]
  - Fall [Unknown]
  - Hip fracture [Unknown]
  - Humerus fracture [Unknown]
